FAERS Safety Report 7804023-1 (Version None)
Quarter: 2011Q4

REPORT INFORMATION
  Report Type: 
  Country: None (occurrence: None)
  Receive Date: 20111010
  Receipt Date: 20110928
  Transmission Date: 20120403
  Serious: No
  Sender: FDA-Public Use
  Company Number: US-JNJFOC-20110912158

PATIENT
  Age: 3 Decade
  Sex: Female
  Weight: 45.09 kg

DRUGS (6)
  1. VALIUM [Concomitant]
     Indication: ANXIETY
     Dosage: DOSE OF 20-30 MG AND STRENGTH OF TABLET IS 10 MG, PRN
     Route: 048
  2. ALPRAZOLAM [Concomitant]
     Indication: ANXIETY
     Route: 048
     Dates: start: 20110901
  3. ALPRAZOLAM [Concomitant]
     Indication: RESTLESSNESS
     Route: 048
     Dates: start: 20110901
  4. AMBIEN [Concomitant]
     Indication: SLEEP DISORDER
     Route: 048
  5. INVEGA SUSTENNA [Suspect]
     Indication: SCHIZOPHRENIA
     Route: 030
     Dates: start: 20110601
  6. VALIUM [Concomitant]
     Indication: RESTLESSNESS
     Dosage: DOSE OF 20-30 MG AND STRENGTH OF TABLET IS 10 MG, PRN
     Route: 048

REACTIONS (3)
  - GALACTORRHOEA [None]
  - RESTLESSNESS [None]
  - AKATHISIA [None]
